FAERS Safety Report 23617884 (Version 2)
Quarter: 2024Q2

REPORT INFORMATION
  Report Type: Spontaneous
  Country: DE (occurrence: DE)
  Receive Date: 20240311
  Receipt Date: 20240502
  Transmission Date: 20240715
  Serious: Yes (Other)
  Sender: FDA-Public Use
  Company Number: DE-AMERICAN REGENT INC-2024000836

PATIENT
  Age: 41 Year
  Sex: Female

DRUGS (1)
  1. FERINJECT [Suspect]
     Active Substance: FERRIC CARBOXYMALTOSE
     Indication: Product used for unknown indication
     Dosage: APPROX.ON 22-FEB-2024, 10 ML DILUTED IN 100 ML 0.9% SALINE SOLUTION (MEDIUM) (500 MG)
     Dates: start: 202402, end: 202402

REACTIONS (7)
  - Arrhythmia [Unknown]
  - Restlessness [Unknown]
  - Dry mouth [Unknown]
  - Fatigue [Not Recovered/Not Resolved]
  - Malaise [Unknown]
  - Nausea [Unknown]
  - Chills [Recovered/Resolved]

NARRATIVE: CASE EVENT DATE: 20240201
